FAERS Safety Report 25307751 (Version 1)
Quarter: 2025Q2

REPORT INFORMATION
  Report Type: Spontaneous
  Country: ZA (occurrence: ZA)
  Receive Date: 20250513
  Receipt Date: 20250513
  Transmission Date: 20250717
  Serious: Yes (Other)
  Sender: FRESENIUS KABI
  Company Number: ZA-FreseniusKabi-FK202506822

PATIENT
  Age: 5 Year
  Sex: Female
  Weight: 20 kg

DRUGS (3)
  1. PROPOVEN [Suspect]
     Active Substance: PROPOFOL
     Indication: Sedation
     Route: 042
     Dates: start: 20250424, end: 20250424
  2. PROPOVEN [Suspect]
     Active Substance: PROPOFOL
     Indication: Local anaesthesia
  3. KETAMINE [Concomitant]
     Active Substance: KETAMINE
     Indication: Sedation
     Route: 040
     Dates: start: 20250424, end: 20250424

REACTIONS (3)
  - Cough [Recovered/Resolved]
  - Hyporeflexia [Recovered/Resolved]
  - Drug ineffective [Unknown]

NARRATIVE: CASE EVENT DATE: 20250424
